FAERS Safety Report 5741574-8 (Version None)
Quarter: 2008Q2

REPORT INFORMATION
  Report Type: 
  Country: None (occurrence: None)
  Receive Date: 20080519
  Receipt Date: 20080318
  Transmission Date: 20081010
  Serious: Yes (Death, Life-Threatening, Other)
  Sender: FDA-Public Use
  Company Number: US-BAYER-200815917GPV

PATIENT

DRUGS (13)
  1. FLUDARABINE PHOSPHATE [Suspect]
     Indication: CHRONIC LYMPHOCYTIC LEUKAEMIA
     Dosage: TOTAL DAILY DOSE: 25 MG/M2  UNIT DOSE: 25 MG/M2
     Route: 042
  2. ALEMTUZUMAB [Suspect]
     Indication: CHRONIC LYMPHOCYTIC LEUKAEMIA
     Dosage: TOTAL DAILY DOSE: 3 MG  UNIT DOSE: 3 MG
     Route: 042
  3. ALEMTUZUMAB [Suspect]
     Dosage: TOTAL DAILY DOSE: 10 MG  UNIT DOSE: 10 MG
     Route: 042
  4. ALEMTUZUMAB [Suspect]
     Dosage: TOTAL DAILY DOSE: 30 MG  UNIT DOSE: 30 MG
     Route: 042
  5. ALEMTUZUMAB [Suspect]
     Dosage: TOTAL DAILY DOSE: 30 MG  UNIT DOSE: 30 MG
     Route: 042
  6. RITUXIMAB [Suspect]
     Indication: B-CELL SMALL LYMPHOCYTIC LYMPHOMA
     Dosage: TOTAL DAILY DOSE: 375 MG/M2  UNIT DOSE: 375 MG/M2
     Route: 042
  7. RITUXIMAB [Suspect]
     Dosage: TOTAL DAILY DOSE: 375 MG/M2  UNIT DOSE: 375 MG/M2
     Route: 042
  8. ALLOPURINOL [Concomitant]
     Indication: PROPHYLAXIS
     Dosage: TOTAL DAILY DOSE: 300 MG  UNIT DOSE: 300 MG
     Route: 048
  9. DIPHENHYDRAMINE HCL [Concomitant]
     Indication: PREMEDICATION
     Dosage: TOTAL DAILY DOSE: 50 MG  UNIT DOSE: 50 MG
     Route: 042
  10. ACETAMINOPHEN [Concomitant]
     Indication: PREMEDICATION
     Dosage: TOTAL DAILY DOSE: 650 MG  UNIT DOSE: 650 MG
     Route: 048
  11. CIMETIDINE [Concomitant]
     Indication: PREMEDICATION
     Dosage: TOTAL DAILY DOSE: 300 MG  UNIT DOSE: 300 MG
     Route: 042
  12. MEPERIDINE HCL [Concomitant]
     Indication: CHILLS
     Route: 042
  13. SULFAMETHOXAZOLE W/TRIMETHROPRIM [Concomitant]
     Indication: INFECTION PROPHYLAXIS
     Dosage: TOTAL DAILY DOSE: 2 DF  UNIT DOSE: 2 DF
     Route: 048

REACTIONS (19)
  - ANAEMIA [None]
  - ANOREXIA [None]
  - ASTHENIA [None]
  - CYTOKINE RELEASE SYNDROME [None]
  - CYTOMEGALOVIRUS INFECTION [None]
  - DEATH [None]
  - DEHYDRATION [None]
  - DIARRHOEA [None]
  - FATIGUE [None]
  - FEBRILE NEUTROPENIA [None]
  - HYPONATRAEMIA [None]
  - LUNG INFILTRATION [None]
  - MYALGIA [None]
  - NAUSEA [None]
  - NEUROPATHY PERIPHERAL [None]
  - NEUTROPENIA [None]
  - SKIN TOXICITY [None]
  - THROMBOCYTOPENIA [None]
  - VOMITING [None]
